FAERS Safety Report 5520972-1 (Version None)
Quarter: 2007Q4

REPORT INFORMATION
  Report Type: 
  Country: None (occurrence: None)
  Receive Date: 20071119
  Receipt Date: 20071113
  Transmission Date: 20080405
  Serious: Yes (Other)
  Sender: FDA-Public Use
  Company Number: GB-ROCHE-529297

PATIENT
  Age: 40 Year
  Sex: Female
  Weight: 114.3 kg

DRUGS (3)
  1. ORLISTAT [Suspect]
     Indication: OBESITY
     Route: 048
     Dates: start: 20070510, end: 20070927
  2. METFORMIN HYDROCHLORIDE [Concomitant]
     Route: 048
     Dates: start: 20070810, end: 20070929
  3. SIMVASTATIN [Concomitant]
     Indication: OBESITY
     Dates: start: 20070809, end: 20070929

REACTIONS (1)
  - ABORTION SPONTANEOUS [None]
